FAERS Safety Report 9848314 (Version 1)
Quarter: 2013Q4

REPORT INFORMATION
  Report Type: Spontaneous
  Country: US (occurrence: None)
  Receive Date: 20131226
  Receipt Date: 20131226
  Transmission Date: 20140711
  Serious: Yes (Other)
  Sender: FDA-Public Use
  Company Number: PHEH2013US016234

PATIENT
  Age: 82 Year
  Sex: Female

DRUGS (9)
  1. ARCAPTA [Suspect]
     Indication: CHRONIC OBSTRUCTIVE PULMONARY DISEASE
     Route: 055
  2. SPIRIVA (TIOTROPIUM BROMIDE) (TIOTROPIUM BROMIDE) [Concomitant]
  3. DILANTIN D.A. (PHENYTOINSODIUM) [Concomitant]
  4. ALBUTEROL (SALBUTAMOL) [Concomitant]
  5. MOBIC (MELOXICAM) [Concomitant]
  6. SIMVASTATIN (SIMVASTATIN) [Concomitant]
  7. POTASSIUM CHLORIDE (POTASSIUM CHLORIDE) [Concomitant]
  8. OMEPRAZOLE (OMEPRAZOLE) [Concomitant]
  9. SYNTHROID (LEVOTHYROXINE SODIUM) [Concomitant]

REACTIONS (1)
  - Incorrect route of drug administration [None]
